FAERS Safety Report 15673403 (Version 1)
Quarter: 2018Q4

REPORT INFORMATION
  Report Type: Spontaneous
  Country: US (occurrence: US)
  Receive Date: 20181129
  Receipt Date: 20181129
  Transmission Date: 20190205
  Serious: No
  Sender: FDA-Public Use
  Company Number: US-AMAG PHARMACEUTICALS, INC.-AMAG201804525

PATIENT
  Sex: Female
  Weight: 70.3 kg

DRUGS (4)
  1. CLOBETASOL [Concomitant]
     Active Substance: CLOBETASOL
     Indication: LICHEN SCLEROSUS
     Route: 065
  2. INTRAROSA [Suspect]
     Active Substance: PRASTERONE
     Indication: ATROPHIC VULVOVAGINITIS
     Dosage: 6.5 MG, QHS
     Route: 067
     Dates: start: 20180514
  3. TRIAMCINOLONE [Concomitant]
     Active Substance: TRIAMCINOLONE
     Indication: LICHEN PLANUS
     Route: 065
  4. CLINDAMYCIN. [Concomitant]
     Active Substance: CLINDAMYCIN
     Indication: VAGINAL INFECTION
     Route: 065

REACTIONS (4)
  - Therapeutic response unexpected [Unknown]
  - Application site discomfort [Not Recovered/Not Resolved]
  - Off label use [Unknown]
  - Underdose [Not Recovered/Not Resolved]

NARRATIVE: CASE EVENT DATE: 2018
